FAERS Safety Report 9001203 (Version 1)
Quarter: 2013Q1

REPORT INFORMATION
  Report Type: Spontaneous
  Country: US (occurrence: US)
  Receive Date: 20130107
  Receipt Date: 20130107
  Transmission Date: 20140127
  Serious: No
  Sender: FDA-Public Use
  Company Number: US-JNJFOC-20121202319

PATIENT
  Age: 21 Year
  Sex: Female

DRUGS (1)
  1. INVEGA SUSTENNA [Suspect]
     Indication: SCHIZOPHRENIA
     Route: 030
     Dates: start: 2011

REACTIONS (7)
  - Weight increased [Not Recovered/Not Resolved]
  - Hepatic enzyme increased [Recovered/Resolved]
  - Blood glucose increased [Recovered/Resolved]
  - Food craving [Not Recovered/Not Resolved]
  - Food craving [Not Recovered/Not Resolved]
  - Drug dose omission [Not Recovered/Not Resolved]
  - Withdrawal syndrome [Not Recovered/Not Resolved]
